FAERS Safety Report 4515313-2 (Version None)
Quarter: 2004Q4

REPORT INFORMATION
  Report Type: 
  Country: None (occurrence: None)
  Receive Date: 20041126
  Receipt Date: 20041115
  Transmission Date: 20050328
  Serious: Yes (Hospitalization, Disabling)
  Sender: FDA-Public Use
  Company Number: 2004UW02786

PATIENT
  Age: 48 Year
  Sex: Female
  Weight: 72.5755 kg

DRUGS (3)
  1. DIPRIVAN [Suspect]
     Indication: SEDATION
     Dates: start: 20031228, end: 20040101
  2. ZOLOFT [Concomitant]
  3. PRAVACHOL [Concomitant]

REACTIONS (17)
  - AMNESIA [None]
  - ANOXIA [None]
  - ASTHENIA [None]
  - BONE PAIN [None]
  - CEREBRAL ISCHAEMIA [None]
  - DEEP VEIN THROMBOSIS [None]
  - DISORIENTATION [None]
  - DISTURBANCE IN ATTENTION [None]
  - DRUG HYPERSENSITIVITY [None]
  - ENCEPHALOPATHY [None]
  - FALL [None]
  - FOOT FRACTURE [None]
  - MYALGIA [None]
  - OVERDOSE [None]
  - SEDATION [None]
  - SEPSIS [None]
  - VISUAL ACUITY REDUCED [None]
